FAERS Safety Report 18080521 (Version 1)
Quarter: 2020Q3

REPORT INFORMATION
  Report Type: Spontaneous
  Country: US (occurrence: US)
  Receive Date: 20200728
  Receipt Date: 20200728
  Transmission Date: 20201103
  Serious: Yes (Hospitalization, Other)
  Sender: FDA-Public Use
  Company Number: US-PURDUE-USA-2020-0159611

PATIENT
  Sex: Male

DRUGS (2)
  1. OXYCODONE/ ACETAMINOPHEN TABLETS [Suspect]
     Active Substance: ACETAMINOPHEN\OXYCODONE HYDROCHLORIDE
     Indication: PRODUCT USED FOR UNKNOWN INDICATION
     Dosage: 6 DF, DAILY
     Route: 048
     Dates: start: 201811, end: 201903
  2. MORPHINE SULFATE (SIMILAR TO NDA 19?516) [Suspect]
     Active Substance: MORPHINE SULFATE
     Indication: PAIN
     Dosage: UNK
     Route: 065

REACTIONS (10)
  - Delusion [Unknown]
  - Aphasia [Unknown]
  - Amnesia [Unknown]
  - Constipation [Unknown]
  - Rehabilitation therapy [Unknown]
  - Surgery [Unknown]
  - Blindness [Unknown]
  - Vision blurred [Unknown]
  - Hospitalisation [Unknown]
  - Deafness [Unknown]

NARRATIVE: CASE EVENT DATE: 201812
